FAERS Safety Report 9738880 (Version 1)
Quarter: 2013Q4

REPORT INFORMATION
  Report Type: Spontaneous
  Country: FR (occurrence: FR)
  Receive Date: 20131209
  Receipt Date: 20131209
  Transmission Date: 20140711
  Serious: Yes (Other)
  Sender: FDA-Public Use
  Company Number: FR-ACCORD-020621

PATIENT
  Age: 70 Year
  Sex: Male

DRUGS (8)
  1. IRINOTECAN HYDROCHLORIDE [Suspect]
     Indication: RECTAL CANCER
  2. FLUOROURACIL [Suspect]
     Indication: RECTAL CANCER
  3. ONDANSETRON [Suspect]
     Indication: PRODUCT USED FOR UNKNOWN INDICATION
     Dosage: ONE 8 MG INFUSION
  4. CALCIUM LEVOFOLINATE [Suspect]
     Indication: RECTAL CANCER
  5. ATROPIN [Concomitant]
  6. ALIZAPRIDE [Concomitant]
  7. LYSINE ACETYLSALICYLIC [Concomitant]
  8. BEVACIZUMAB [Concomitant]

REACTIONS (1)
  - Priapism [Recovered/Resolved]
